FAERS Safety Report 24540490 (Version 1)
Quarter: 2024Q4

REPORT INFORMATION
  Report Type: Spontaneous
  Country: US (occurrence: US)
  Receive Date: 20241023
  Receipt Date: 20241023
  Transmission Date: 20250114
  Serious: Yes (Other)
  Sender: GILEAD
  Company Number: US-GILEAD-2024-0691859

PATIENT
  Age: 75 Year
  Sex: Male
  Weight: 77.2 kg

DRUGS (4)
  1. YESCARTA [Suspect]
     Active Substance: AXICABTAGENE CILOLEUCEL
     Indication: Diffuse large B-cell lymphoma
     Dosage: UNK, ONCE
     Route: 042
     Dates: start: 20240917, end: 20240917
  2. OXYGEN [Concomitant]
     Active Substance: OXYGEN
     Route: 045
  3. BENADRYL [Concomitant]
     Active Substance: DIPHENHYDRAMINE HYDROCHLORIDE
  4. TYLENOL [Concomitant]
     Active Substance: ACETAMINOPHEN

REACTIONS (8)
  - Hypoxia [Recovered/Resolved]
  - Chest discomfort [Unknown]
  - Pallor [Unknown]
  - Breath sounds abnormal [Unknown]
  - Tachycardia [Recovered/Resolved]
  - Hypertension [Recovered/Resolved]
  - Extrasystoles [Recovered/Resolved]
  - Hypotension [Unknown]

NARRATIVE: CASE EVENT DATE: 20240917
